FAERS Safety Report 8872546 (Version 1)
Quarter: 2012Q4

REPORT INFORMATION
  Report Type: 
  Country: US (occurrence: US)
  Receive Date: 20121026
  Receipt Date: 20121026
  Transmission Date: 20130627
  Serious: No
  Sender: FDA-Public Use
  Company Number: US-AMGEN-USASP2012051280

PATIENT
  Sex: Female
  Weight: 64.4 kg

DRUGS (4)
  1. ENBREL [Suspect]
     Indication: PRODUCT USED FOR UNKNOWN INDICATION
     Dosage: 50 mg, qwk
     Route: 058
  2. AMBIEN [Concomitant]
     Dosage: 5 mg, once daily
  3. DIGESTIVE ENZYME [Concomitant]
     Dosage: UNK
  4. PROBIOTIC                          /06395501/ [Concomitant]
     Dosage: UNK

REACTIONS (4)
  - Tinnitus [Unknown]
  - Fatigue [Unknown]
  - Headache [Unknown]
  - Injection site pain [Unknown]
